FAERS Safety Report 24297117 (Version 1)
Quarter: 2024Q3

REPORT INFORMATION
  Report Type: Spontaneous
  Country: JP (occurrence: None)
  Receive Date: 20240909
  Receipt Date: 20240909
  Transmission Date: 20241017
  Serious: Yes (Hospitalization)
  Sender: ASTRAZENECA
  Company Number: 2024A200884

PATIENT
  Age: 90 Year
  Sex: Male

DRUGS (25)
  1. DAPAGLIFLOZIN [Suspect]
     Active Substance: DAPAGLIFLOZIN
     Indication: Cardiac failure chronic
     Route: 048
  2. SACUBITRIL VALSARTAN SODIUM HYDRATE [Concomitant]
     Active Substance: SACUBITRIL VALSARTAN SODIUM HYDRATE
     Route: 048
  3. BISOPROLOL [Concomitant]
     Active Substance: BISOPROLOL\BISOPROLOL FUMARATE
     Route: 048
  4. FUROSEMIDE [Concomitant]
     Active Substance: FUROSEMIDE
     Route: 048
  5. FUROSEMIDE [Concomitant]
     Active Substance: FUROSEMIDE
     Route: 048
  6. FUROSEMIDE [Concomitant]
     Active Substance: FUROSEMIDE
     Route: 042
  7. FUROSEMIDE [Concomitant]
     Active Substance: FUROSEMIDE
     Route: 042
  8. TOLVAPTAN [Concomitant]
     Active Substance: TOLVAPTAN
     Route: 048
  9. TOLVAPTAN [Concomitant]
     Active Substance: TOLVAPTAN
     Route: 048
  10. TOLVAPTAN [Concomitant]
     Active Substance: TOLVAPTAN
     Route: 048
  11. TOLVAPTAN [Concomitant]
     Active Substance: TOLVAPTAN
     Route: 042
  12. TOLVAPTAN [Concomitant]
     Active Substance: TOLVAPTAN
     Route: 042
  13. TOLVAPTAN [Concomitant]
     Active Substance: TOLVAPTAN
     Route: 042
  14. TRICHLORMETHIAZIDE [Concomitant]
     Active Substance: TRICHLORMETHIAZIDE
     Route: 048
  15. NIFEDIPINE [Concomitant]
     Active Substance: NIFEDIPINE
     Route: 048
  16. NIFEDIPINE [Concomitant]
     Active Substance: NIFEDIPINE
     Route: 048
  17. EDOXABAN TOSYLATE [Concomitant]
     Active Substance: EDOXABAN TOSYLATE
     Route: 048
  18. ROSUVASTATIN [Concomitant]
     Active Substance: ROSUVASTATIN\ROSUVASTATIN CALCIUM
     Route: 048
  19. FEBUXOSTAT [Concomitant]
     Active Substance: FEBUXOSTAT
     Route: 048
  20. LANSOPRAZOLE [Concomitant]
     Active Substance: LANSOPRAZOLE
     Route: 048
  21. LIOTHYRONINE SODIUM/LEVOTHYROXINE SODIUM [Concomitant]
     Route: 048
  22. OLODATEROL HYDROCHLORIDE\TIOTROPIUM BROMIDE MONOHYDRATE [Concomitant]
     Active Substance: OLODATEROL HYDROCHLORIDE\TIOTROPIUM BROMIDE MONOHYDRATE
     Dosage: NUMBER OF SEPARATE DOSAGES UNKNOWN
     Route: 055
  23. SODIUM POLYSTYRENE SULFONATE [Concomitant]
     Active Substance: SODIUM POLYSTYRENE SULFONATE
     Dosage: NUMBER OF SEPARATE DOSAGES UNKNOWN
     Route: 048
  24. NITROGLYCERIN [Concomitant]
     Active Substance: NITROGLYCERIN
     Dosage: DOSE UNKNOWN
     Route: 041
  25. AZOSEMIDE [Concomitant]
     Active Substance: AZOSEMIDE
     Route: 048

REACTIONS (4)
  - Cardiac failure chronic [Unknown]
  - Haematochezia [Unknown]
  - Pyelonephritis [Unknown]
  - Weight increased [Unknown]
